FAERS Safety Report 24869367 (Version 1)
Quarter: 2025Q1

REPORT INFORMATION
  Report Type: Spontaneous
  Country: US (occurrence: None)
  Receive Date: 20250119
  Receipt Date: 20250119
  Transmission Date: 20250408
  Serious: Yes (Hospitalization, Other)
  Sender: FDA-CTU
  Company Number: None

PATIENT
  Age: 33 Year
  Sex: Male
  Weight: 101.25 kg

DRUGS (4)
  1. TIRZEPATIDE [Suspect]
     Active Substance: TIRZEPATIDE
  2. gabapentin 600mg TID [Concomitant]
     Dates: start: 20240726
  3. Ibuprofen 800mg TID [Concomitant]
     Dates: start: 20240731
  4. Omeprazole 20mg BID [Concomitant]
     Dates: start: 20240725

REACTIONS (3)
  - Priapism [None]
  - Wrong product administered [None]
  - Product preparation error [None]

NARRATIVE: CASE EVENT DATE: 20250119
